FAERS Safety Report 10366612 (Version 1)
Quarter: 2014Q3

REPORT INFORMATION
  Report Type: Spontaneous
  Country: RU (occurrence: None)
  Receive Date: 20140804
  Receipt Date: 20140804
  Transmission Date: 20150326
  Serious: Yes (Hospitalization)
  Sender: FDA-Public Use
  Company Number: FK201403025

PATIENT
  Age: 61 Year
  Sex: Female

DRUGS (8)
  1. PROPOFOL. [Suspect]
     Active Substance: PROPOFOL
     Indication: PRODUCT USED FOR UNKNOWN INDICATION
     Route: 042
  2. ARDUAN [Concomitant]
     Active Substance: PIPECURONIUM BROMIDE
  3. PHENYLEPHRINE HYDROCHLORIDE. [Concomitant]
     Active Substance: PHENYLEPHRINE HYDROCHLORIDE
  4. DOPAMINE HYDROCHLORIDE. [Suspect]
     Active Substance: DOPAMINE HYDROCHLORIDE
  5. ADRENALINE (EPINEPHRINE) [Concomitant]
     Active Substance: EPINEPHRINE
  6. SEVORAN (SEVOFLURANE) [Concomitant]
  7. ISOKET (ISOSORBIDE DINITRATE) [Concomitant]
  8. ACTRAPID HM (INSULIN HUMAN) [Concomitant]

REACTIONS (4)
  - Alanine aminotransferase increased [None]
  - Rhabdomyolysis [None]
  - Aspartate aminotransferase increased [None]
  - Blood creatinine increased [None]
